FAERS Safety Report 6914698-7 (Version None)
Quarter: 2010Q3

REPORT INFORMATION
  Report Type: 
  Country: None (occurrence: None)
  Receive Date: 20100809
  Receipt Date: 20100727
  Transmission Date: 20110219
  Serious: Yes (Other)
  Sender: FDA-Public Use
  Company Number: US-CELGENEUS-163-21880-10070681

PATIENT

DRUGS (6)
  1. REVLIMID [Suspect]
     Indication: MULTIPLE MYELOMA
     Route: 048
     Dates: start: 20041201, end: 20061201
  2. REVLIMID [Suspect]
     Route: 048
     Dates: start: 20050301, end: 20081201
  3. DEXAMETHASONE [Suspect]
     Indication: MULTIPLE MYELOMA
     Route: 065
     Dates: start: 20041201
  4. DEXAMETHASONE [Suspect]
     Route: 065
     Dates: end: 20061101
  5. DEXAMETHASONE [Suspect]
     Route: 065
     Dates: start: 20050301, end: 20081201
  6. BIAXIN [Suspect]
     Indication: MULTIPLE MYELOMA
     Route: 065
     Dates: start: 20041201, end: 20061101

REACTIONS (29)
  - ABDOMINAL ABSCESS [None]
  - ANAEMIA [None]
  - ANXIETY [None]
  - CARDIOVASCULAR DISORDER [None]
  - DEEP VEIN THROMBOSIS [None]
  - DEPRESSION [None]
  - ELECTROLYTE IMBALANCE [None]
  - EMBOLISM VENOUS [None]
  - FATIGUE [None]
  - GASTROINTESTINAL HAEMORRHAGE [None]
  - GASTROINTESTINAL TOXICITY [None]
  - HYPERGLYCAEMIA [None]
  - INFECTION [None]
  - LARGE INTESTINE PERFORATION [None]
  - LEUKOPENIA [None]
  - MOOD ALTERED [None]
  - MYOPATHY [None]
  - NEUTROPENIA [None]
  - OEDEMA [None]
  - PANCREATITIS [None]
  - PNEUMONIA [None]
  - PSYCHOTIC DISORDER [None]
  - PULMONARY EMBOLISM [None]
  - RENAL FAILURE [None]
  - SEPSIS [None]
  - SKIN TOXICITY [None]
  - THROMBOCYTOPENIA [None]
  - TRANSAMINASES INCREASED [None]
  - TREMOR [None]
